FAERS Safety Report 17417716 (Version 2)
Quarter: 2020Q1

REPORT INFORMATION
  Report Type: Spontaneous
  Country: CH (occurrence: CH)
  Receive Date: 20200214
  Receipt Date: 20200309
  Transmission Date: 20200409
  Serious: Yes (Hospitalization, Other)
  Sender: FDA-Public Use
  Company Number: CH-PFIZER INC-2020060565

PATIENT
  Age: 66 Year

DRUGS (8)
  1. TEPADINA [Suspect]
     Active Substance: THIOTEPA
     Dosage: 58 MG, IN TOTAL
     Route: 042
     Dates: start: 20200112, end: 20200112
  2. CYTOSAR [Suspect]
     Active Substance: CYTARABINE
     Dosage: 3860 MG, 2X/DAY
     Route: 042
     Dates: start: 20200110, end: 20200111
  3. METHOTREXATE SODIUM. [Suspect]
     Active Substance: METHOTREXATE SODIUM
     Dosage: 6755 MG, IN TOTAL
     Route: 042
     Dates: start: 20200109
  4. BACTRIM [Suspect]
     Active Substance: SULFAMETHOXAZOLE\TRIMETHOPRIM
     Dosage: UNK UNK, 1X/DAY
     Route: 048
     Dates: start: 202001, end: 20200117
  5. VALTREX [Suspect]
     Active Substance: VALACYCLOVIR HYDROCHLORIDE
     Dosage: 500 MG, 2X/DAY (500 MG, 1-0-0-1)
     Route: 048
     Dates: start: 20200109, end: 20200117
  6. ZYLORIC [Suspect]
     Active Substance: ALLOPURINOL
     Dosage: 300 MG, 1X/DAY  (1-0-0-0)
     Route: 048
     Dates: start: 20200109, end: 20200117
  7. MABTHERA [Suspect]
     Active Substance: RITUXIMAB
     Dosage: 724 MG, IN TOTAL
     Route: 042
     Dates: start: 20200109, end: 20200109
  8. NEXIUM [Suspect]
     Active Substance: ESOMEPRAZOLE MAGNESIUM
     Dosage: 40 MG, 1X/DAY (40 MG, 1-0-0-0)
     Route: 048
     Dates: start: 20200109, end: 20200117

REACTIONS (6)
  - Pancytopenia [Recovering/Resolving]
  - C-reactive protein increased [Unknown]
  - Agranulocytosis [Recovering/Resolving]
  - Petechiae [Recovering/Resolving]
  - Rash macular [Recovering/Resolving]
  - Febrile neutropenia [Recovering/Resolving]

NARRATIVE: CASE EVENT DATE: 20200115
